FAERS Safety Report 5307945-9 (Version None)
Quarter: 2007Q2

REPORT INFORMATION
  Report Type: 
  Country: None (occurrence: None)
  Receive Date: 20070426
  Receipt Date: 20070418
  Transmission Date: 20071010
  Serious: Yes (Death)
  Sender: FDA-Public Use
  Company Number: 2007AP02291

PATIENT
  Age: 60 Year
  Sex: Female

DRUGS (2)
  1. SEROQUEL [Suspect]
     Indication: PSYCHOTIC DISORDER
     Route: 048
  2. LEVOMEPROMAZINE [Concomitant]
     Route: 048

REACTIONS (1)
  - SUDDEN DEATH [None]
